FAERS Safety Report 9837244 (Version 1)
Quarter: 2014Q1

REPORT INFORMATION
  Report Type: Spontaneous
  Country: US (occurrence: US)
  Receive Date: 20140123
  Receipt Date: 20140123
  Transmission Date: 20141002
  Serious: Yes (Other)
  Sender: FDA-Public Use
  Company Number: US-JNJFOC-20140109240

PATIENT
  Sex: Male
  Weight: 126.1 kg

DRUGS (1)
  1. STELARA [Suspect]
     Indication: PSORIASIS
     Route: 058
     Dates: start: 20121011, end: 20130822

REACTIONS (1)
  - Lymphoma [Not Recovered/Not Resolved]
